FAERS Safety Report 14828916 (Version 1)
Quarter: 2018Q2

REPORT INFORMATION
  Report Type: Not Available
  Country: DE (occurrence: DE)
  Receive Date: 20180430
  Receipt Date: 20180430
  Transmission Date: 20180711
  Serious: Yes (Hospitalization)
  Sender: FDA-Public Use
  Company Number: DE-SYNTHON BV-NL01PV18_46875

PATIENT
  Age: 81 Year
  Sex: Male

DRUGS (8)
  1. METAMIZOL                          /06276704/ [Suspect]
     Active Substance: METAMIZOLE SODIUM
     Dosage: 30 GTT, 1-1-1-1
  2. TAMSULOSIN [Suspect]
     Active Substance: TAMSULOSIN
     Dosage: 0.4 MG, 1-0-0-0
  3. VALSARTAN AND HYDROCHLOROTHIAZIDE [Suspect]
     Active Substance: HYDROCHLOROTHIAZIDE\VALSARTAN
     Dosage: 160|25 MG, 1-0-0-0
  4. MOVICOL [Concomitant]
     Active Substance: POLYETHYLENE GLYCOL 3350\POTASSIUM CHLORIDE\SODIUM BICARBONATE\SODIUM CHLORIDE
     Dosage: 1-0-1-0
  5. IBUPROFEN. [Concomitant]
     Active Substance: IBUPROFEN
     Dosage: 400 MG, 2-0-2-0
  6. CLOPIDOGREL [Concomitant]
     Active Substance: CLOPIDOGREL BISULFATE
     Dosage: 75 MG, 1-0-0-0
  7. XELEVIA [Concomitant]
     Active Substance: SITAGLIPTIN PHOSPHATE
     Dosage: 100 MG, 1-0-0-0
  8. OXYCODON [Suspect]
     Active Substance: OXYCODONE
     Dosage: 10 MG, 1-0-0-0

REACTIONS (2)
  - Memory impairment [Unknown]
  - Fall [Unknown]
